FAERS Safety Report 9515142 (Version 2)
Quarter: 2014Q1

REPORT INFORMATION
  Report Type: Spontaneous
  Country: US (occurrence: None)
  Receive Date: 20130305
  Receipt Date: 20140306
  Transmission Date: 20141002
  Serious: Yes (Hospitalization, Other)
  Sender: FDA-Public Use
  Company Number: 163-21880-12103613

PATIENT
  Age: 69 Year
  Sex: Male

DRUGS (16)
  1. REVLIMID [Suspect]
     Indication: PLASMA CELL MYELOMA
     Route: 048
     Dates: start: 201006
  2. ASA (ACETYLSALICYLIC ACID) [Concomitant]
  3. AMLODOIPINE BESYLATE (AMLODIPINE BESILATE) [Concomitant]
  4. METOPROLOL TARTRATE [Concomitant]
  5. PROTONIX [Concomitant]
  6. ACYCLOVIR (ACICLOVIR) (ACICLOVIR) [Concomitant]
  7. LOSARTAN [Concomitant]
  8. LEVOTHYROXINE [Concomitant]
  9. GABAPENTIN [Concomitant]
  10. FLUOXETINE [Concomitant]
  11. MULTIVITAMIN WITH IRON + VITAMIN D3 [Concomitant]
  12. CALCIUM D3 [Concomitant]
  13. MAGNESIUM OXIDE [Concomitant]
  14. D3 (COLECALCIFEROL) [Concomitant]
  15. NUVIGIL (ARMODAFINIL) [Concomitant]
  16. LORAZEPAM [Concomitant]

REACTIONS (2)
  - Pancreatitis [None]
  - Platelet count decreased [None]
